FAERS Safety Report 12265462 (Version 1)
Quarter: 2016Q2

REPORT INFORMATION
  Report Type: Spontaneous
  Country: GB (occurrence: GB)
  Receive Date: 20160413
  Receipt Date: 20160413
  Transmission Date: 20160815
  Serious: Yes (Other)
  Sender: FDA-Public Use
  Company Number: GB-TEVA-650123ACC

PATIENT
  Age: 70 Year
  Sex: Male
  Weight: 75 kg

DRUGS (9)
  1. GAVISCON [Concomitant]
     Active Substance: ALUMINUM HYDROXIDE\MAGNESIUM CARBONATE
     Dosage: 10 ML DAILY; AT NIGHT.
     Dates: start: 20150509
  2. LANSOPRAZOLE. [Concomitant]
     Active Substance: LANSOPRAZOLE
     Dosage: 2 DOSAGE FORMS DAILY; 30MINUTES BEFORE FOOD.
     Dates: start: 20150509
  3. TRIMETHOPRIM. [Suspect]
     Active Substance: TRIMETHOPRIM
     Dates: start: 20160323
  4. RAMIPRIL. [Concomitant]
     Active Substance: RAMIPRIL
     Dosage: 1 DOSAGE FORMS DAILY;
     Dates: start: 20150509
  5. TAMSULOSIN HYDROCHLORIDE. [Concomitant]
     Active Substance: TAMSULOSIN HYDROCHLORIDE
     Dosage: 1 DOSAGE FORMS DAILY; AT NIGHT.
     Dates: start: 20150509
  6. WARFARIN SODIUM. [Concomitant]
     Active Substance: WARFARIN SODIUM
     Dosage: AS DIRECTED.
     Dates: start: 20150509
  7. HYDROXOCOBALAMIN [Concomitant]
     Active Substance: HYDROXOCOBALAMIN
     Dosage: USE AS DIRECTED.
     Dates: start: 20130717
  8. SOTALOL. [Concomitant]
     Active Substance: SOTALOL
     Dosage: 2 DOSAGE FORMS DAILY;
     Dates: start: 20150509
  9. CIPROFLOXACIN. [Concomitant]
     Active Substance: CIPROFLOXACIN
     Dosage: 2 DOSAGE FORMS DAILY;
     Dates: start: 20160323

REACTIONS (1)
  - Vasculitic rash [Recovering/Resolving]

NARRATIVE: CASE EVENT DATE: 20160324
